FAERS Safety Report 8925093 (Version 1)
Quarter: 2012Q4

REPORT INFORMATION
  Report Type: Spontaneous
  Country: US (occurrence: None)
  Receive Date: 20121126
  Receipt Date: 20121126
  Transmission Date: 20130627
  Serious: Yes (Other)
  Sender: FDA-Public Use
  Company Number: None

PATIENT
  Sex: Female
  Weight: 88 kg

DRUGS (6)
  1. INCIVEK [Suspect]
     Indication: HEPATITIS C
     Dosage: 2 tablets tid po
     Route: 048
     Dates: start: 20120817, end: 20121106
  2. PEGASYS [Concomitant]
  3. RIBASPHERE CAPSULE [Concomitant]
  4. ATARAX [Concomitant]
  5. AMBIEN [Concomitant]
  6. PHENERGAN CY [Concomitant]

REACTIONS (3)
  - Pruritus [None]
  - Insomnia [None]
  - No therapeutic response [None]
